FAERS Safety Report 16451831 (Version 1)
Quarter: 2019Q2

REPORT INFORMATION
  Report Type: Spontaneous
  Country: US (occurrence: US)
  Receive Date: 20190509
  Receipt Date: 20190509
  Transmission Date: 20190711
  Serious: Yes (Other)
  Sender: FDA-Public Use
  Company Number: None

PATIENT
  Age: 71 Year
  Sex: Female

DRUGS (14)
  1. TYLENOL [Concomitant]
     Active Substance: ACETAMINOPHEN
  2. MVI [Concomitant]
     Active Substance: VITAMINS
  3. FLONASE [Concomitant]
     Active Substance: FLUTICASONE PROPIONATE
  4. LETAIRIS [Suspect]
     Active Substance: AMBRISENTAN
     Indication: PULMONARY ARTERIAL HYPERTENSION
     Route: 048
     Dates: start: 201607
  5. AMLODIPINE [Concomitant]
     Active Substance: AMLODIPINE BESYLATE
  6. ATORVASTATIN [Concomitant]
     Active Substance: ATORVASTATIN
  7. VENTOLIN HFA [Concomitant]
     Active Substance: ALBUTEROL SULFATE
  8. TADALAFIL. [Concomitant]
     Active Substance: TADALAFIL
  9. METOPROLOL. [Concomitant]
     Active Substance: METOPROLOL
  10. PRADAXA [Concomitant]
     Active Substance: DABIGATRAN ETEXILATE MESYLATE
  11. K-TAB [Concomitant]
     Active Substance: POTASSIUM CHLORIDE
  12. FERROUS SULFATE. [Concomitant]
     Active Substance: FERROUS SULFATE
  13. FUROSEMIDE. [Concomitant]
     Active Substance: FUROSEMIDE
  14. ALLOPURINOL. [Concomitant]
     Active Substance: ALLOPURINOL

REACTIONS (3)
  - Hypokalaemia [None]
  - Atelectasis [None]
  - Pneumonia [None]

NARRATIVE: CASE EVENT DATE: 20190424
